FAERS Safety Report 7781499-X (Version None)
Quarter: 2011Q3

REPORT INFORMATION
  Report Type: 
  Country: None (occurrence: None)
  Receive Date: 20110923
  Receipt Date: 20110909
  Transmission Date: 20111222
  Serious: Yes (Congenital Anomaly)
  Sender: FDA-Public Use
  Company Number: AUR-APL-2011-05037

PATIENT
  Sex: Male
  Weight: 3.3 kg

DRUGS (5)
  1. CONTRIM (BACTRIM) [Concomitant]
  2. ACETAMINOPHEN [Concomitant]
  3. MIRTAZAPINE [Suspect]
     Indication: DEPRESSION
     Dosage: (15 MG, 1 D), TRANSPLACENTAL
     Route: 064
     Dates: start: 20100805, end: 20110504
  4. NASENSPRAY (XYLOMETAZOLINE HYDROCHLORIDE) [Concomitant]
  5. FOLIO FORTE [Concomitant]

REACTIONS (4)
  - CAESAREAN SECTION [None]
  - MATERNAL DRUGS AFFECTING FOETUS [None]
  - BREECH DELIVERY [None]
  - HYPOSPADIAS [None]
